FAERS Safety Report 7265247-8 (Version None)
Quarter: 2011Q1

REPORT INFORMATION
  Report Type: 
  Country: None (occurrence: None)
  Receive Date: 20110131
  Receipt Date: 20110120
  Transmission Date: 20110831
  Serious: Yes (Hospitalization)
  Sender: FDA-Public Use
  Company Number: IT-ASTRAZENECA-2011SE03579

PATIENT
  Sex: Female

DRUGS (7)
  1. MIRTAZAPINE ALTER [Suspect]
     Indication: MAJOR DEPRESSION
     Route: 048
     Dates: start: 20090101
  2. LACIPIL [Suspect]
     Indication: HYPERTENSION
     Route: 048
     Dates: start: 20090101
  3. SEROQUEL [Suspect]
     Indication: BIPOLAR I DISORDER
     Route: 048
     Dates: start: 20090101
  4. NORTRIPTYLINE HCL [Suspect]
     Indication: MAJOR DEPRESSION
     Route: 048
     Dates: start: 20090101
  5. GABAPENTIN ABC [Suspect]
     Indication: EPILEPSY
     Route: 048
     Dates: start: 20090101
  6. RIVOTRIL [Suspect]
     Indication: EPILEPSY
     Route: 048
     Dates: start: 20090101
  7. VASERETIC [Suspect]
     Indication: HYPERTENSION
     Route: 048
     Dates: start: 20090101

REACTIONS (2)
  - SOPOR [None]
  - BRADYPHRENIA [None]
